FAERS Safety Report 15708914 (Version 2)
Quarter: 2018Q4

REPORT INFORMATION
  Report Type: Spontaneous
  Country: US (occurrence: US)
  Receive Date: 20181211
  Receipt Date: 20181221
  Transmission Date: 20190205
  Serious: Yes (Other)
  Sender: FDA-Public Use
  Company Number: US-AMGEN-USASP2018173981

PATIENT
  Age: 81 Year
  Sex: Female

DRUGS (3)
  1. PROLIA [Suspect]
     Active Substance: DENOSUMAB
     Indication: OSTEOPOROSIS POSTMENOPAUSAL
     Dosage: UNK
     Route: 065
     Dates: start: 2016, end: 201806
  2. PHENOBARBITAL. [Concomitant]
     Active Substance: PHENOBARBITAL
     Dosage: 90 MG, QD
  3. TEGRETOL [Concomitant]
     Active Substance: CARBAMAZEPINE
     Indication: EPILEPSY
     Dosage: 1000 MG, QD

REACTIONS (6)
  - Arthritis [Not Recovered/Not Resolved]
  - Knee arthroplasty [Unknown]
  - Groin pain [Not Recovered/Not Resolved]
  - Tooth extraction [Unknown]
  - Mobility decreased [Unknown]
  - Cystitis [Unknown]

NARRATIVE: CASE EVENT DATE: 2016
